FAERS Safety Report 11371607 (Version 3)
Quarter: 2015Q3

REPORT INFORMATION
  Report Type: Spontaneous
  Country: CN (occurrence: CN)
  Receive Date: 20150812
  Receipt Date: 20150903
  Transmission Date: 20151125
  Serious: Yes (Other)
  Sender: FDA-Public Use
  Company Number: CN-ABBVIE-15P-035-1441980-00

PATIENT
  Age: 41 Year
  Sex: Male

DRUGS (1)
  1. DEPAKINE CHRONO [Suspect]
     Active Substance: VALPROATE SODIUM
     Indication: EPILEPSY
     Dosage: EXTENDED RELEASE
     Route: 065
     Dates: start: 201402, end: 20150817

REACTIONS (10)
  - Loss of consciousness [Recovered/Resolved]
  - Generalised tonic-clonic seizure [Recovered/Resolved]
  - Medication residue present [Unknown]
  - Wrong technique in product usage process [Unknown]
  - Petit mal epilepsy [Recovered/Resolved]
  - Amnesia [Recovered/Resolved]
  - Lip injury [Recovered/Resolved]
  - Foaming at mouth [Recovered/Resolved]
  - Musculoskeletal stiffness [Recovered/Resolved]
  - Seizure [Recovered/Resolved]

NARRATIVE: CASE EVENT DATE: 2014
